FAERS Safety Report 15397582 (Version 7)
Quarter: 2021Q1

REPORT INFORMATION
  Report Type: Report from Study
  Country: ES (occurrence: ES)
  Receive Date: 20180918
  Receipt Date: 20210129
  Transmission Date: 20210419
  Serious: Yes (Life-Threatening, Hospitalization)
  Sender: FDA-Public Use
  Company Number: ES-ROCHE-2184640

PATIENT
  Age: 60 Year
  Sex: Male
  Weight: 91.2 kg

DRUGS (19)
  1. ATEZOLIZUMAB. [Suspect]
     Active Substance: ATEZOLIZUMAB
     Indication: NEOPLASM
     Dosage: DATE OF MOST RECENT DOSE OF ATEZOLIZUMAB (840 MG) PRIOR TO SAE ONSET 10/SEP/2018 AT 12.04?TOTAL VOLU
     Route: 042
     Dates: start: 20180730
  2. RANITIDINE. [Concomitant]
     Active Substance: RANITIDINE
     Indication: PREMEDICATION
     Dates: start: 20180730, end: 20180730
  3. INDOMETACIN [Concomitant]
     Active Substance: INDOMETHACIN
     Dates: start: 20180910, end: 20180910
  4. RANITIDINE. [Concomitant]
     Active Substance: RANITIDINE
     Dates: start: 20180820, end: 20180820
  5. INDOMETACIN [Concomitant]
     Active Substance: INDOMETHACIN
     Dates: start: 20180813
  6. INDOMETACIN [Concomitant]
     Active Substance: INDOMETHACIN
     Dates: start: 20180820, end: 20180820
  7. PARACETAMOL [Concomitant]
     Active Substance: ACETAMINOPHEN
     Indication: PREMEDICATION
     Dates: start: 20180730, end: 20180730
  8. INDOMETACIN [Concomitant]
     Active Substance: INDOMETHACIN
     Dates: start: 20180827, end: 20180827
  9. POLARAMINE [Concomitant]
     Active Substance: DEXCHLORPHENIRAMINE MALEATE
     Indication: PRURITUS
     Dates: start: 20180803, end: 20180911
  10. RO6874281 (FAP IL2V MAB) [Suspect]
     Active Substance: SIMLUKAFUSP ALFA
     Dosage: DATE OF MOST RECENT DOSE OF RO6874281 (10 MG) PRIOR TO SAE ONSET: 10/SEP/2018
     Route: 042
  11. EUTIROX [Concomitant]
     Active Substance: LEVOTHYROXINE SODIUM
     Indication: HYPOTHYROIDISM
  12. MASTICAL [Concomitant]
     Active Substance: CALCIUM CARBONATE
     Dates: start: 20170804
  13. RANITIDINE. [Concomitant]
     Active Substance: RANITIDINE
     Dates: start: 20180813, end: 20180813
  14. RO6874281 (FAP IL2V MAB) [Suspect]
     Active Substance: SIMLUKAFUSP ALFA
     Indication: NEOPLASM
     Dosage: DATE OF MOST RECENT DOSE OF RO 6874281 (FAP IL2V MAB) (10 MG) PRIOR TO AE ONSET 10/SEP/2018 AT 13.36
     Route: 042
     Dates: start: 20180730
  15. OMEPRAZOL [Concomitant]
     Active Substance: OMEPRAZOLE
     Dates: start: 2016
  16. PARACETAMOL [Concomitant]
     Active Substance: ACETAMINOPHEN
     Dates: start: 20180910, end: 20180910
  17. INDOMETACIN [Concomitant]
     Active Substance: INDOMETHACIN
     Indication: PREMEDICATION
     Dates: start: 20180730, end: 20180730
  18. RANITIDINE. [Concomitant]
     Active Substance: RANITIDINE
     Dates: start: 20180827, end: 20180827
  19. RANITIDINE. [Concomitant]
     Active Substance: RANITIDINE
     Dates: start: 20180910, end: 20180910

REACTIONS (1)
  - Anaphylactic reaction [Recovered/Resolved]

NARRATIVE: CASE EVENT DATE: 20180912
